FAERS Safety Report 25650389 (Version 2)
Quarter: 2025Q3

REPORT INFORMATION
  Report Type: Spontaneous
  Country: US (occurrence: US)
  Receive Date: 20250806
  Receipt Date: 20250822
  Transmission Date: 20251020
  Serious: Yes (Death, Hospitalization)
  Sender: TEVA
  Company Number: US-TEVA-VS-3358682

PATIENT
  Age: 75 Year
  Sex: Male

DRUGS (3)
  1. METHOTREXATE [Suspect]
     Active Substance: METHOTREXATE
     Indication: Rheumatoid arthritis
     Route: 065
  2. RITUXIMAB [Suspect]
     Active Substance: RITUXIMAB
     Indication: Rheumatoid arthritis
     Route: 065
  3. VORICONAZOLE [Suspect]
     Active Substance: VORICONAZOLE
     Indication: Aspergillus infection
     Route: 065

REACTIONS (8)
  - Aspergillus infection [Fatal]
  - Cytomegalovirus infection [Recovering/Resolving]
  - Toxicity to various agents [Unknown]
  - COVID-19 [Recovering/Resolving]
  - Pulmonary toxicity [Unknown]
  - Respiratory failure [Recovering/Resolving]
  - Drug ineffective [Fatal]
  - Candida infection [Fatal]
